FAERS Safety Report 8014197-8 (Version None)
Quarter: 2011Q4

REPORT INFORMATION
  Report Type: 
  Country: None (occurrence: None)
  Receive Date: 20111229
  Receipt Date: 20111221
  Transmission Date: 20120403
  Serious: Yes (Hospitalization)
  Sender: FDA-Public Use
  Company Number: US-GLAXOSMITHKLINE-A0899754A

PATIENT
  Age: 55 Year
  Sex: Male
  Weight: 124.1 kg

DRUGS (10)
  1. HYDROCHLOROTHIAZIDE [Concomitant]
  2. TOPROL-XL [Concomitant]
  3. NIACIN [Concomitant]
  4. ASPIRIN [Concomitant]
  5. LOPID [Concomitant]
  6. AVANDAMET [Suspect]
     Indication: DIABETES MELLITUS
     Route: 048
     Dates: start: 20040428, end: 20050115
  7. AVANDIA [Suspect]
     Indication: DIABETES MELLITUS
     Dosage: 4MG TWICE PER DAY
     Route: 048
     Dates: start: 20050116, end: 20060119
  8. METFORMIN HCL [Concomitant]
  9. LIPITOR [Concomitant]
  10. GEMFIBROZIL [Concomitant]

REACTIONS (2)
  - CEREBROVASCULAR ACCIDENT [None]
  - CARDIAC FAILURE CONGESTIVE [None]
